FAERS Safety Report 13203647 (Version 1)
Quarter: 2017Q1

REPORT INFORMATION
  Report Type: Spontaneous
  Country: US (occurrence: US)
  Receive Date: 20170209
  Receipt Date: 20170209
  Transmission Date: 20170428
  Serious: No
  Sender: FDA-Public Use
  Company Number: US-PFIZER INC-2017050167

PATIENT
  Sex: Male

DRUGS (2)
  1. GUANFACINE. [Suspect]
     Active Substance: GUANFACINE
     Dosage: UNK
  2. QUILLIVANT XR [Suspect]
     Active Substance: METHYLPHENIDATE HYDROCHLORIDE
     Dosage: 9 ML OF QUILLIVANT XR A DAY SO ABOUT 45 MG A DAY
     Route: 048

REACTIONS (5)
  - Product measured potency issue [Unknown]
  - Product preparation error [Unknown]
  - Nightmare [Unknown]
  - Product taste abnormal [Unknown]
  - Drug dose omission [Unknown]

NARRATIVE: CASE EVENT DATE: 20170201
